FAERS Safety Report 8502671-7 (Version None)
Quarter: 2012Q3

REPORT INFORMATION
  Report Type: 
  Country: None (occurrence: None)
  Receive Date: 20120702
  Receipt Date: 20120615
  Transmission Date: 20120928
  Serious: Yes (Hospitalization)
  Sender: FDA-Public Use
  Company Number: 2012SGN00275

PATIENT
  Age: 64 Year
  Sex: Female
  Weight: 108.8 kg

DRUGS (1)
  1. BRENTUXIMAB VEDOTIN (BRENTUXIMAB VEDOTIN) INJECTION [Suspect]
     Indication: DIFFUSE LARGE B-CELL LYMPHOMA
     Dosage: 180 MG,Q21D, INTRAVENOUS
     Route: 042
     Dates: start: 20120525, end: 20120614

REACTIONS (3)
  - FEBRILE NEUTROPENIA [None]
  - RASH [None]
  - DIARRHOEA [None]
